FAERS Safety Report 13064962 (Version 1)
Quarter: 2016Q4

REPORT INFORMATION
  Report Type: Spontaneous
  Country: US (occurrence: US)
  Receive Date: 20161227
  Receipt Date: 20161227
  Transmission Date: 20170207
  Serious: No
  Sender: FDA-Public Use
  Company Number: None

PATIENT
  Age: 73 Year
  Sex: Male
  Weight: 56.3 kg

DRUGS (2)
  1. DOCETAXEL 80MGX1 NOVA PLUS [Suspect]
     Active Substance: DOCETAXEL
     Indication: NEOPLASM MALIGNANT
     Route: 042
     Dates: start: 20161118
  2. DOCETAXEL 20MGX3 NOVA PLUS [Suspect]
     Active Substance: DOCETAXEL
     Indication: NEOPLASM MALIGNANT
     Route: 042
     Dates: start: 20161209

REACTIONS (4)
  - Infusion related reaction [None]
  - Flushing [None]
  - Abdominal pain [None]
  - Dyspnoea [None]
